FAERS Safety Report 10486943 (Version 1)
Quarter: 2014Q3

REPORT INFORMATION
  Report Type: Spontaneous
  Country: US (occurrence: None)
  Receive Date: 20140930
  Receipt Date: 20140930
  Transmission Date: 20150326
  Serious: Yes (Hospitalization)
  Sender: FDA-Public Use
  Company Number: None

PATIENT
  Age: 58 Year
  Sex: Male
  Weight: 94 kg

DRUGS (1)
  1. TRAMADOL [Suspect]
     Active Substance: TRAMADOL
     Indication: PAIN
     Dosage: 50 MG UD PO
     Route: 048
     Dates: start: 20140313, end: 20140324

REACTIONS (2)
  - Extra dose administered [None]
  - Convulsion [None]

NARRATIVE: CASE EVENT DATE: 20140624
